FAERS Safety Report 20761386 (Version 1)
Quarter: 2022Q2

REPORT INFORMATION
  Report Type: Spontaneous
  Country: ES (occurrence: ES)
  Receive Date: 20220428
  Receipt Date: 20220428
  Transmission Date: 20220721
  Serious: Yes (Life-Threatening, Hospitalization)
  Sender: FDA-Public Use
  Company Number: None

PATIENT
  Age: 35 Year
  Sex: Female
  Weight: 70 kg

DRUGS (4)
  1. NUVARING [Suspect]
     Active Substance: ETHINYL ESTRADIOL\ETONOGESTREL
     Indication: Contraception
     Dosage: 1 DOSAGE FORM 28 DAYS, 0.120/0.01 MG ONE INJECTION PER MONTH
     Route: 067
     Dates: start: 20211210
  2. DEXKETOPROFEN TROMETAMOL [Suspect]
     Active Substance: DEXKETOPROFEN TROMETAMOL
     Indication: Back pain
     Dosage: 25 MILLIGRAM, 2 TOTAL, GRANULES FOR ORAL SOLUTION, 20 SACHETS
     Route: 048
     Dates: start: 202112, end: 202112
  3. DICLOFENAC SODIUM [Suspect]
     Active Substance: DICLOFENAC SODIUM
     Indication: Back pain
     Dosage: 75 MILLIGRAM,ONCE, SOLUTION FOR INJECTION GENERIC, 6 AMPOULES OF 3 ML
     Route: 030
     Dates: start: 20211210, end: 20211210
  4. FERINJECT [Concomitant]
     Active Substance: FERRIC CARBOXYMALTOSE
     Indication: Iron deficiency anaemia
     Dosage: SINGLE DOSE, SOLUTION FOR INJECTION AND INFUSION, 1 VIAL OF 10 ML, 50 MG/ML
     Route: 042
     Dates: start: 20220214

REACTIONS (3)
  - Hepatic cytolysis [Not Recovered/Not Resolved]
  - Hyperbilirubinaemia [Not Recovered/Not Resolved]
  - Coagulopathy [Not Recovered/Not Resolved]

NARRATIVE: CASE EVENT DATE: 20220113
